FAERS Safety Report 10873880 (Version 2)
Quarter: 2015Q1

REPORT INFORMATION
  Report Type: Spontaneous
  Country: US (occurrence: US)
  Receive Date: 20150227
  Receipt Date: 20150327
  Transmission Date: 20150721
  Serious: Yes (Death, Hospitalization, Other)
  Sender: FDA-Public Use
  Company Number: US-ELI_LILLY_AND_COMPANY-US201502007321

PATIENT
  Age: 59 Year
  Sex: Male
  Weight: 88.35 kg

DRUGS (8)
  1. DURAGESIC [Concomitant]
     Active Substance: FENTANYL
     Dosage: UNK, UNKNOWN
  2. KLOR-CON [Concomitant]
     Active Substance: POTASSIUM CHLORIDE
     Dosage: UNK, UNKNOWN
  3. COMPAZINE [Concomitant]
     Active Substance: PROCHLORPERAZINE MALEATE
     Dosage: UNK, UNKNOWN
  4. TAXOL [Concomitant]
     Active Substance: PACLITAXEL
     Dosage: UNK, CYCLICAL
     Route: 065
  5. PERCOCET                           /00446701/ [Concomitant]
     Active Substance: ACETAMINOPHEN\OXYCODONE HYDROCHLORIDE\OXYCODONE TEREPHTHALATE
     Dosage: UNK, UNKNOWN
  6. CYRAMZA [Suspect]
     Active Substance: RAMUCIRUMAB
     Indication: OESOPHAGEAL ADENOCARCINOMA
     Dosage: 8 MG/KG (720 MG), CYCLICAL
     Route: 042
     Dates: start: 20150130, end: 20150213
  7. TAXOL [Concomitant]
     Active Substance: PACLITAXEL
     Dosage: UNK, UNKNOWN
     Route: 065
     Dates: start: 20150130, end: 20150205
  8. PROTONIX [Concomitant]
     Active Substance: PANTOPRAZOLE SODIUM
     Dosage: UNK, UNKNOWN

REACTIONS (4)
  - Gastrointestinal haemorrhage [Fatal]
  - Malignant neoplasm progression [Unknown]
  - Haemoptysis [Unknown]
  - Medical device complication [Unknown]

NARRATIVE: CASE EVENT DATE: 20150205
